FAERS Safety Report 7814409-7 (Version None)
Quarter: 2011Q4

REPORT INFORMATION
  Report Type: 
  Country: None (occurrence: None)
  Receive Date: 20111011
  Receipt Date: 20111003
  Transmission Date: 20120403
  Serious: Yes (Hospitalization, Other)
  Sender: FDA-Public Use
  Company Number: 2011SP001281

PATIENT
  Age: 43 Year
  Sex: Female
  Weight: 88.4514 kg

DRUGS (9)
  1. MIRTAZAPINE [Concomitant]
  2. NUVARING [Suspect]
     Indication: CONTRACEPTION
     Dosage: VAG
     Route: 067
     Dates: start: 20080724, end: 20080905
  3. NUVARING [Suspect]
     Indication: MENSTRUATION IRREGULAR
     Dosage: VAG
     Route: 067
     Dates: start: 20080724, end: 20080905
  4. PROPRANOLOL [Concomitant]
  5. LEVOTHYROXINE SODIUM [Concomitant]
  6. SEROQUEL [Concomitant]
  7. DIAZEPAM [Concomitant]
  8. ZYPREXA [Concomitant]
  9. LYRICA [Concomitant]

REACTIONS (21)
  - ANXIETY [None]
  - BARTHOLIN'S CYST REMOVAL [None]
  - VENOUS OCCLUSION [None]
  - SYNOVITIS [None]
  - DEPRESSION [None]
  - MENTAL DISORDER [None]
  - HYPERCOAGULATION [None]
  - NEURALGIA [None]
  - PULMONARY EMBOLISM [None]
  - OEDEMA PERIPHERAL [None]
  - MENISCUS LESION [None]
  - ASTHMA [None]
  - PSORIASIS [None]
  - PLANTAR FASCIITIS [None]
  - LIGAMENT RUPTURE [None]
  - VENOUS STENOSIS [None]
  - CHONDROMALACIA [None]
  - DIABETES MELLITUS [None]
  - IRRITABLE BOWEL SYNDROME [None]
  - PNEUMONIA [None]
  - BLOOD CHOLESTEROL INCREASED [None]
